FAERS Safety Report 5745827-9 (Version None)
Quarter: 2008Q2

REPORT INFORMATION
  Report Type: 
  Country: None (occurrence: None)
  Receive Date: 20080520
  Receipt Date: 20080508
  Transmission Date: 20081010
  Serious: Yes (Hospitalization)
  Sender: FDA-Public Use
  Company Number: 2008JP002209

PATIENT
  Sex: Female

DRUGS (13)
  1. PROGRAF [Suspect]
     Indication: RHEUMATOID ARTHRITIS
     Dosage: 1 MG, UID/QD; 2 MG, UID/QD; 3 MG, UID/QD
     Dates: start: 20061201, end: 20070905
  2. PROGRAF [Suspect]
     Indication: RHEUMATOID ARTHRITIS
     Dosage: 1 MG, UID/QD; 2 MG, UID/QD; 3 MG, UID/QD
     Dates: start: 20060501
  3. PROGRAF [Suspect]
     Indication: RHEUMATOID ARTHRITIS
     Dosage: 1 MG, UID/QD; 2 MG, UID/QD; 3 MG, UID/QD
     Dates: start: 20060601
  4. KEISHIBUKURYOUGAN (HERBAL EXTRACT NOS) [Concomitant]
  5. METHOTREXATE [Concomitant]
  6. NIVADIL (NILVADIPINE) [Concomitant]
  7. KODESORUVAN (AMBROXOL HYDROCHLORIDE) [Concomitant]
  8. SULINDAC [Concomitant]
  9. NIZATIDINE [Concomitant]
  10. PREDNISOLONE [Concomitant]
  11. ASPIRIN [Concomitant]
  12. FOLIC ACID [Concomitant]
  13. MAGLAX (MAGNESIUM OXIDE) [Concomitant]

REACTIONS (11)
  - CHILLS [None]
  - ENTERITIS INFECTIOUS [None]
  - FATIGUE [None]
  - HALLUCINATION, AUDITORY [None]
  - HYPOAESTHESIA [None]
  - INFLAMMATION [None]
  - IRRITABILITY [None]
  - MUSCLE SPASMS [None]
  - RENAL DISORDER [None]
  - SOMATIC HALLUCINATION [None]
  - TINNITUS [None]
